FAERS Safety Report 9148457 (Version 1)
Quarter: 2013Q1

REPORT INFORMATION
  Report Type: Spontaneous
  Country: FR (occurrence: None)
  Receive Date: 20130220
  Receipt Date: 20130220
  Transmission Date: 20140127
  Serious: Yes (Death)
  Sender: FDA-Public Use
  Company Number: 2013-02590

PATIENT
  Sex: 0

DRUGS (1)
  1. PROPYLTHIOURACIL [Suspect]
     Indication: BASEDOW^S DISEASE
     Dosage: FROM THE BEGINNING OF THE FOURTH MONTH OF PREGNANCY TO 26 WEEKS OF PREGNANCY (13 WEEKS), TRANSPLACENTAL
     Route: 064

REACTIONS (4)
  - Neonatal multi-organ failure [None]
  - Premature baby [None]
  - Death neonatal [None]
  - Maternal drugs affecting foetus [None]
